FAERS Safety Report 5933591-X (Version None)
Quarter: 2008Q4

REPORT INFORMATION
  Report Type: 
  Country: None (occurrence: None)
  Receive Date: 20081010
  Receipt Date: 20080104
  Transmission Date: 20090506
  Serious: No
  Sender: FDA-Public Use
  Company Number: 07H-163-0313164-00

PATIENT
  Sex: Male

DRUGS (2)
  1. LIDOCAINE HCL INJ [Suspect]
     Indication: VENTRICULAR EXTRASYSTOLES
     Dosage: 2GM/250 ML, CONTINOUS DRIP, INTRAVENOUS
     Route: 042
  2. LEVOPHED [Concomitant]

REACTIONS (3)
  - BRADYCARDIA [None]
  - MEDICATION ERROR [None]
  - OVERDOSE [None]
